FAERS Safety Report 24540040 (Version 1)
Quarter: 2024Q4

REPORT INFORMATION
  Report Type: Spontaneous
  Country: US (occurrence: None)
  Receive Date: 20241022
  Receipt Date: 20241022
  Transmission Date: 20250114
  Serious: No
  Sender: Public
  Company Number: None

PATIENT
  Age: 47 Year
  Sex: Female
  Weight: 90 kg

DRUGS (3)
  1. TALTZ [Suspect]
     Active Substance: IXEKIZUMAB
     Indication: Psoriasis
     Dosage: OTHER FREQUENCY : Q2 WEEKS X 12WEEKS;?
     Route: 058
     Dates: start: 20241004
  2. SUMATRIPTAN [Concomitant]
     Active Substance: SUMATRIPTAN
  3. AMLODIPINE [Concomitant]
     Active Substance: AMLODIPINE BESYLATE

REACTIONS (3)
  - Injection site pruritus [None]
  - Injection site swelling [None]
  - Injection site discolouration [None]

NARRATIVE: CASE EVENT DATE: 20241004
